FAERS Safety Report 6310175-5 (Version None)
Quarter: 2009Q3

REPORT INFORMATION
  Report Type: 
  Country: None (occurrence: None)
  Receive Date: 20090814
  Receipt Date: 20090804
  Transmission Date: 20100115
  Serious: Yes (Hospitalization, Disabling)
  Sender: FDA-Public Use
  Company Number: PR-MERCK-0805USA02792

PATIENT
  Age: 67 Year
  Sex: Female

DRUGS (3)
  1. FOSAMAX [Suspect]
     Indication: OSTEOPOROSIS
     Route: 048
     Dates: start: 20000101, end: 20070101
  2. FOSAMAX [Suspect]
     Route: 048
     Dates: start: 19990310, end: 20001201
  3. FOSAMAX [Suspect]
     Route: 048
     Dates: start: 20051118, end: 20061101

REACTIONS (19)
  - ADVERSE EVENT [None]
  - ANXIETY [None]
  - ARTHRITIS [None]
  - ASTHMA [None]
  - BONE DISORDER [None]
  - BRONCHITIS [None]
  - CARPAL TUNNEL SYNDROME [None]
  - DEPRESSION [None]
  - GASTROENTERITIS [None]
  - HEADACHE [None]
  - HYPOTHYROIDISM [None]
  - INFECTION [None]
  - LOOSE TOOTH [None]
  - OSTEOARTHRITIS [None]
  - OSTEONECROSIS [None]
  - OSTEOPOROSIS [None]
  - OVERWEIGHT [None]
  - PATELLOFEMORAL PAIN SYNDROME [None]
  - UPPER RESPIRATORY TRACT INFECTION [None]
